FAERS Safety Report 17180115 (Version 1)
Quarter: 2019Q4

REPORT INFORMATION
  Report Type: Spontaneous
  Country: US (occurrence: US)
  Receive Date: 20191219
  Receipt Date: 20191219
  Transmission Date: 20200122
  Serious: No
  Sender: FDA-Public Use
  Company Number: US-ASTRAZENECA-2019SF67510

PATIENT
  Sex: Male
  Weight: 56.7 kg

DRUGS (2)
  1. PULMICORT TURBUHALER [Suspect]
     Active Substance: BUDESONIDE
     Indication: ASTHMA
     Dosage: UNKNOWN
     Route: 055
     Dates: start: 2017
  2. MONTELUKAST [Concomitant]
     Active Substance: MONTELUKAST SODIUM
     Indication: ASTHMA

REACTIONS (6)
  - Intentional device misuse [Unknown]
  - Incorrect dose administered by device [Unknown]
  - Product dose omission [Unknown]
  - Device issue [Unknown]
  - Drug ineffective [Unknown]
  - Asthenia [Unknown]
